FAERS Safety Report 8371128-9 (Version None)
Quarter: 2012Q2

REPORT INFORMATION
  Report Type: 
  Country: None (occurrence: None)
  Receive Date: 20120518
  Receipt Date: 20120508
  Transmission Date: 20120825
  Serious: Yes (Hospitalization)
  Sender: FDA-Public Use
  Company Number: US-BRISTOL-MYERS SQUIBB COMPANY-16576514

PATIENT
  Age: 56 Year
  Sex: Female

DRUGS (4)
  1. BEVACIZUMAB [Suspect]
     Indication: NON-SMALL CELL LUNG CANCER
  2. ERLOTINIB HYDROCHLORIDE [Suspect]
     Indication: NON-SMALL CELL LUNG CANCER
  3. CETUXIMAB [Suspect]
     Indication: NON-SMALL CELL LUNG CANCER
  4. HEPARIN [Suspect]
     Indication: DEEP VEIN THROMBOSIS

REACTIONS (3)
  - DEEP VEIN THROMBOSIS [None]
  - RASH [None]
  - HAEMATOMA [None]
